FAERS Safety Report 7899100 (Version 5)
Quarter: 2015Q2

REPORT INFORMATION
  Report Type: Spontaneous
  Country: FR (occurrence: FR)
  Receive Date: 20110414
  Receipt Date: 20150521
  Transmission Date: 20150821
  Serious: Yes (Hospitalization)
  Sender: FDA-Public Use
  Company Number: FR-ROCHE-770125

PATIENT
  Age: 36 Year
  Sex: Male

DRUGS (57)
  1. PEGASYS [Suspect]
     Active Substance: PEGINTERFERON ALFA-2A
     Route: 058
  2. DEXERYL (FRANCE) [Concomitant]
     Active Substance: GLYCERIN\PARAFFIN
     Route: 065
     Dates: start: 20071016
  3. MOTILIUM [Concomitant]
     Active Substance: DOMPERIDONE
     Dosage: TREATMENT FOR 3 MONTHS
     Route: 065
     Dates: start: 20070724
  4. XANAX [Concomitant]
     Active Substance: ALPRAZOLAM
     Dosage: 3 TAB/DAY IF NEEDED, TREATMENT FOR 6 MONTHS
     Route: 065
     Dates: start: 20080429
  5. FROVATRIPTAN SUCCINATE [Concomitant]
     Active Substance: FROVATRIPTAN SUCCINATE
     Dosage: 1 TO 2 DF/DAY
     Route: 065
     Dates: start: 20090420
  6. PEGASYS [Suspect]
     Active Substance: PEGINTERFERON ALFA-2A
     Route: 058
  7. PEGASYS [Suspect]
     Active Substance: PEGINTERFERON ALFA-2A
     Dosage: TREATMENT FOR 3 MONTH
     Route: 058
  8. STILNOX [Concomitant]
     Active Substance: ZOLPIDEM TARTRATE
     Route: 065
  9. DOLIPRANE [Concomitant]
     Active Substance: ACETAMINOPHEN
     Dosage: TREATMENT FOR 4 MONTHS
     Route: 065
     Dates: start: 20050715
  10. DOLIPRANE [Concomitant]
     Active Substance: ACETAMINOPHEN
     Dosage: TREATMENT FOR 6 MONTHS
     Route: 065
     Dates: start: 20060102
  11. DOLIPRANE [Concomitant]
     Active Substance: ACETAMINOPHEN
     Dosage: AS REQUIRED
     Route: 065
     Dates: start: 20071016
  12. MOTILIUM [Concomitant]
     Active Substance: DOMPERIDONE
     Route: 065
     Dates: start: 20071016
  13. HEXOMEDINE (FRANCE) [Concomitant]
     Dosage: TREATMENT FOR 1 YEAR
     Route: 065
  14. ADVIL [Concomitant]
     Active Substance: IBUPROFEN
     Dosage: TREATMENT FOR 1 MONTH
     Route: 065
     Dates: start: 20071108
  15. BI-PROFENID [Concomitant]
     Active Substance: KETOPROFEN
     Route: 065
     Dates: start: 20090420
  16. PEGASYS [Suspect]
     Active Substance: PEGINTERFERON ALFA-2A
     Route: 058
  17. PEGASYS [Suspect]
     Active Substance: PEGINTERFERON ALFA-2A
     Route: 058
  18. PEGASYS [Suspect]
     Active Substance: PEGINTERFERON ALFA-2A
     Dosage: TREATMENT FOR 1 MONTH
     Route: 058
  19. PEGASYS [Suspect]
     Active Substance: PEGINTERFERON ALFA-2A
     Dosage: TREATMENT FOR 6 MONTH
     Route: 058
  20. PEGASYS [Suspect]
     Active Substance: PEGINTERFERON ALFA-2A
     Dosage: TREATMENT FOR 6 MONTH
     Route: 058
  21. DOLIPRANE [Concomitant]
     Active Substance: ACETAMINOPHEN
     Dosage: TREATMENT FOR 6 MONTHS
     Route: 065
     Dates: start: 20050310
  22. DOLIPRANE [Concomitant]
     Active Substance: ACETAMINOPHEN
     Dosage: AS REQUIRED
     Route: 065
     Dates: start: 20080429
  23. DEXERYL (FRANCE) [Concomitant]
     Active Substance: GLYCERIN\PARAFFIN
     Dosage: TREATMENT FOR 3 MONTH
     Route: 065
     Dates: start: 20081125
  24. ADVIL [Concomitant]
     Active Substance: IBUPROFEN
     Dosage: TREATMENT FOR 3 MONTH
     Route: 065
     Dates: start: 20090309
  25. XANAX [Concomitant]
     Active Substance: ALPRAZOLAM
     Dosage: 3 TAB/DAY IF NEEDED
     Route: 065
     Dates: start: 20080124
  26. XANAX [Concomitant]
     Active Substance: ALPRAZOLAM
     Dosage: 3 TAB/DAY IF NEEDED, TREATMENT FOR 3 MONTHS
     Route: 065
     Dates: start: 20081125
  27. PARIET [Concomitant]
     Active Substance: RABEPRAZOLE SODIUM
     Route: 065
     Dates: start: 20090420
  28. PEGASYS [Suspect]
     Active Substance: PEGINTERFERON ALFA-2A
     Indication: PRODUCT USED FOR UNKNOWN INDICATION
     Route: 058
  29. DEXERYL (FRANCE) [Concomitant]
     Active Substance: GLYCERIN\PARAFFIN
     Dosage: TREATMENT FOR 6 MONTH
     Route: 065
     Dates: start: 20080808
  30. MOTILIUM [Concomitant]
     Active Substance: DOMPERIDONE
     Dosage: TREATMENT FOR 3 MONTHS
     Route: 065
     Dates: start: 20070427
  31. TITANOREINE (FRANCE) [Concomitant]
     Dosage: TREATMENT FOR 15 DAYS
     Route: 065
     Dates: start: 20070830
  32. XANAX [Concomitant]
     Active Substance: ALPRAZOLAM
     Dosage: 3 TAB/DAY IF NEEDED, TREATMENT FOR 2 MONTHS
     Route: 065
     Dates: start: 20071206
  33. PEGASYS [Suspect]
     Active Substance: PEGINTERFERON ALFA-2A
     Dosage: TREATMENT FOR 3 MONTHS
     Route: 058
  34. DOLIPRANE [Concomitant]
     Active Substance: ACETAMINOPHEN
     Dosage: TREATMENT FOR 4 MONTHS
     Route: 065
     Dates: start: 20051010
  35. DOLIPRANE [Concomitant]
     Active Substance: ACETAMINOPHEN
     Dosage: TREATMENT FOR 3 MONTHS
     Route: 065
     Dates: start: 20070427
  36. DOLIPRANE [Concomitant]
     Active Substance: ACETAMINOPHEN
     Dosage: TREATMENT FOR 15 DAYS
     Route: 065
     Dates: start: 20070830
  37. DOLIPRANE [Concomitant]
     Active Substance: ACETAMINOPHEN
     Dosage: AS REQUIRED
     Route: 065
     Dates: start: 20071108
  38. DEXERYL (FRANCE) [Concomitant]
     Active Substance: GLYCERIN\PARAFFIN
     Dosage: TREATMENT FOR 3 MONTHS
     Route: 065
     Dates: start: 20070724
  39. DEXERYL (FRANCE) [Concomitant]
     Active Substance: GLYCERIN\PARAFFIN
     Dosage: TREATMENT FOR 3 MONTH
     Route: 065
     Dates: start: 20090309
  40. ADVIL [Concomitant]
     Active Substance: IBUPROFEN
     Indication: MUSCULOSKELETAL PAIN
     Route: 065
     Dates: start: 20070427
  41. ADVIL [Concomitant]
     Active Substance: IBUPROFEN
     Dosage: IF NEEDED, TREATMENT FOR 3 MONTHS
     Route: 065
     Dates: start: 20070803
  42. XANAX [Concomitant]
     Active Substance: ALPRAZOLAM
     Dosage: 3 TAB/DAY IF NEEDED, TREATMENT FOR 6 MONTHS
     Route: 065
     Dates: start: 20080808
  43. PEGASYS [Suspect]
     Active Substance: PEGINTERFERON ALFA-2A
     Dosage: TREATMENT FOR 3 MONTH
     Route: 058
  44. DEXERYL (FRANCE) [Concomitant]
     Active Substance: GLYCERIN\PARAFFIN
     Dosage: TREATMENT FOR 3 MONTHS
     Route: 065
     Dates: start: 20070427
  45. DEXERYL (FRANCE) [Concomitant]
     Active Substance: GLYCERIN\PARAFFIN
     Route: 065
     Dates: start: 20071108
  46. HEXOMEDINE (FRANCE) [Concomitant]
     Dosage: TREATMENT FOR 2 MONTHS
     Route: 065
     Dates: start: 20071206
  47. HEXOMEDINE (FRANCE) [Concomitant]
     Dosage: TREATMENT FOR 2 MONTHS
     Route: 065
     Dates: start: 20080124
  48. ADVIL [Concomitant]
     Active Substance: IBUPROFEN
     Dosage: TREATMENT FOR 1 MONTH
     Route: 065
     Dates: start: 20080328
  49. PEGASYS [Suspect]
     Active Substance: PEGINTERFERON ALFA-2A
     Dosage: TREATMENT FOR 3 MONTHS
     Route: 058
  50. DOLIPRANE [Concomitant]
     Active Substance: ACETAMINOPHEN
     Dosage: TREATMENT FOR 3 MONTHS
     Route: 065
     Dates: start: 20070724
  51. DEXERYL (FRANCE) [Concomitant]
     Active Substance: GLYCERIN\PARAFFIN
     Route: 065
     Dates: start: 20071206
  52. ADVIL [Concomitant]
     Active Substance: IBUPROFEN
     Dosage: TREATMENT FOR 3 MONTH
     Route: 065
     Dates: start: 20081125
  53. DEXERYL (FRANCE) [Concomitant]
     Active Substance: GLYCERIN\PARAFFIN
     Route: 065
     Dates: start: 20080124
  54. DEXERYL (FRANCE) [Concomitant]
     Active Substance: GLYCERIN\PARAFFIN
     Dosage: TREATMENT FOR 1 MONTH
     Route: 065
     Dates: start: 20080328
  55. DEXERYL (FRANCE) [Concomitant]
     Active Substance: GLYCERIN\PARAFFIN
     Dosage: TREATMENT FOR 6 MONTH
     Route: 065
     Dates: start: 20080429
  56. ADVIL [Concomitant]
     Active Substance: IBUPROFEN
     Route: 065
     Dates: start: 20080124
  57. LANSOYL [Concomitant]
     Active Substance: MINERAL OIL
     Dosage: TREATMENT FOR 15 DAYS
     Route: 065

REACTIONS (1)
  - Osteonecrosis [Recovered/Resolved with Sequelae]

NARRATIVE: CASE EVENT DATE: 20100626
